FAERS Safety Report 17636777 (Version 1)
Quarter: 2020Q2

REPORT INFORMATION
  Report Type: Spontaneous
  Country: US (occurrence: US)
  Receive Date: 20200406
  Receipt Date: 20200406
  Transmission Date: 20200713
  Serious: No
  Sender: FDA-Public Use
  Company Number: None

PATIENT
  Age: 37 Year
  Sex: Male
  Weight: 82.35 kg

DRUGS (6)
  1. ARIPIPRAZOLE 1.25MG ONCE DAILY [Concomitant]
  2. VIT B-2 [Concomitant]
  3. MULTIVITAMIN [Concomitant]
     Active Substance: VITAMINS
  4. ARIPIPRAZOLE. [Suspect]
     Active Substance: ARIPIPRAZOLE
     Indication: ANGER
     Dosage: ?          QUANTITY:1 TABLET(S);?
     Route: 048
  5. DEPAKIN CHRONO [Suspect]
     Active Substance: VALPROIC ACID
     Indication: DIZZINESS
     Dosage: ?          QUANTITY:1 TABLET(S);?
     Route: 048
  6. TRINTILEX 20MG ONCE DAILY [Concomitant]

REACTIONS (2)
  - Tremor [None]
  - Chills [None]

NARRATIVE: CASE EVENT DATE: 20200315
